FAERS Safety Report 12294183 (Version 1)
Quarter: 2016Q2

REPORT INFORMATION
  Report Type: Spontaneous
  Country: US (occurrence: US)
  Receive Date: 20160422
  Receipt Date: 20160422
  Transmission Date: 20160815
  Serious: Yes (Other)
  Sender: FDA-Public Use
  Company Number: US-BEH-2016061345

PATIENT
  Sex: Female
  Weight: 33 kg

DRUGS (16)
  1. HIZENTRA [Suspect]
     Active Substance: HUMAN IMMUNOGLOBULIN G
     Indication: HYPOGAMMAGLOBULINAEMIA
     Dosage: HIZENTRA 1 GM/ 2 GM
     Route: 058
     Dates: start: 20100923
  2. DESMOPRESSIN [Concomitant]
     Active Substance: DESMOPRESSIN
  3. PAXIL [Concomitant]
     Active Substance: PAROXETINE HYDROCHLORIDE
  4. PREVACID [Concomitant]
     Active Substance: LANSOPRAZOLE
  5. HIZENTRA [Suspect]
     Active Substance: HUMAN IMMUNOGLOBULIN G
     Dosage: HIZENTRA 1 GM/ 2 GM
     Route: 058
     Dates: start: 20100923
  6. CEFPROZIL. [Concomitant]
     Active Substance: CEFPROZIL
  7. ZITHROMAX [Concomitant]
     Active Substance: AZITHROMYCIN DIHYDRATE
  8. ACETAMINOPHEN. [Concomitant]
     Active Substance: ACETAMINOPHEN
  9. CLINDAMYCIN [Concomitant]
     Active Substance: CLINDAMYCIN\CLINDAMYCIN PHOSPHATE
  10. IBUPROFEN. [Concomitant]
     Active Substance: IBUPROFEN
  11. ZYRTEC [Concomitant]
     Active Substance: CETIRIZINE HYDROCHLORIDE
  12. DIPHENHYDRAMINE. [Concomitant]
     Active Substance: DIPHENHYDRAMINE
  13. EPIPEN [Concomitant]
     Active Substance: EPINEPHRINE
  14. BACTRIM [Concomitant]
     Active Substance: SULFAMETHOXAZOLE\TRIMETHOPRIM
  15. LIDOCAINE. [Concomitant]
     Active Substance: LIDOCAINE
  16. PRILOCAINE [Concomitant]
     Active Substance: PRILOCAINE

REACTIONS (1)
  - Staphylococcal infection [Unknown]
